FAERS Safety Report 6198740-X (Version None)
Quarter: 2009Q2

REPORT INFORMATION
  Report Type: 
  Country: None (occurrence: None)
  Receive Date: 20090521
  Receipt Date: 20090510
  Transmission Date: 20091009
  Serious: Yes (Other)
  Sender: FDA-Public Use
  Company Number: BR-GENENTECH-283177

PATIENT
  Age: 59 Year
  Sex: Female

DRUGS (6)
  1. HERCEPTIN [Suspect]
     Indication: BREAST CANCER
     Dosage: UNK
     Route: 065
     Dates: start: 20080901, end: 20081218
  2. HERCEPTIN [Suspect]
     Dosage: 6 MG/KG, Q21D
     Dates: start: 20090109, end: 20090313
  3. TAXOTERE [Suspect]
     Indication: BREAST CANCER
     Dosage: UNK
     Dates: start: 20080901
  4. TAXOTERE [Suspect]
     Dosage: 70 MG/M2, Q21D
     Route: 065
     Dates: start: 20081011, end: 20081218
  5. CARBOPLATIN [Concomitant]
     Indication: DRUG USE FOR UNKNOWN INDICATION
     Dosage: UNK
     Dates: start: 20080901, end: 20090101
  6. RADIOTHERAPY [Concomitant]
     Indication: DRUG USE FOR UNKNOWN INDICATION
     Dosage: UNK

REACTIONS (11)
  - CONNECTIVE TISSUE DISORDER [None]
  - DIZZINESS [None]
  - DYSPNOEA [None]
  - FEBRILE NEUTROPENIA [None]
  - FORMICATION [None]
  - MUCOSAL INFLAMMATION [None]
  - MUSCULAR WEAKNESS [None]
  - OEDEMA PERIPHERAL [None]
  - ORAL HERPES [None]
  - PANCYTOPENIA [None]
  - SKIN HAEMORRHAGE [None]
